FAERS Safety Report 7617489-7 (Version None)
Quarter: 2011Q3

REPORT INFORMATION
  Report Type: 
  Country: None (occurrence: None)
  Receive Date: 20110718
  Receipt Date: 20110713
  Transmission Date: 20111222
  Serious: No
  Sender: FDA-Public Use
  Company Number: US-PFIZER INC-2011158599

PATIENT
  Sex: Female

DRUGS (3)
  1. LISINOPRIL [Suspect]
     Dosage: UNK
  2. TRIAMTERENE AND HYDROCHLOROTHIAZIDE [Suspect]
     Dosage: UNK
  3. AMLODIPINE BESYLATE [Suspect]
     Dosage: UNK

REACTIONS (9)
  - FEELING ABNORMAL [None]
  - MALAISE [None]
  - DIZZINESS [None]
  - DRY MOUTH [None]
  - MUSCLE SPASMS [None]
  - URTICARIA [None]
  - ABDOMINAL PAIN UPPER [None]
  - ASTHENIA [None]
  - RASH [None]
